FAERS Safety Report 18329972 (Version 1)
Quarter: 2020Q3

REPORT INFORMATION
  Report Type: Report from Study
  Country: ES (occurrence: ES)
  Receive Date: 20200930
  Receipt Date: 20200930
  Transmission Date: 20201103
  Serious: Yes (Other)
  Sender: FDA-Public Use
  Company Number: ES-PFIZER INC-2020367432

PATIENT
  Age: 41 Year
  Sex: Male

DRUGS (1)
  1. METHOTREXATE. [Suspect]
     Active Substance: METHOTREXATE
     Indication: LEUKAEMIA RECURRENT PROPHYLAXIS
     Dosage: 12 MG
     Route: 037

REACTIONS (1)
  - Cerebellar syndrome [Recovered/Resolved]
